FAERS Safety Report 25807812 (Version 1)
Quarter: 2025Q3

REPORT INFORMATION
  Report Type: Spontaneous
  Country: US (occurrence: US)
  Receive Date: 20250916
  Receipt Date: 20250916
  Transmission Date: 20251020
  Serious: Yes (Other)
  Sender: PFIZER
  Company Number: US-PFIZER INC-202500181656

PATIENT
  Age: 77 Year
  Sex: Female
  Weight: 58.05 kg

DRUGS (1)
  1. IBRANCE [Suspect]
     Active Substance: PALBOCICLIB
     Indication: Breast cancer metastatic
     Route: 048
     Dates: start: 2016

REACTIONS (5)
  - Left ventricular failure [Unknown]
  - Laryngitis [Recovering/Resolving]
  - Nasopharyngitis [Recovering/Resolving]
  - Seasonal allergy [Recovering/Resolving]
  - Weight decreased [Unknown]

NARRATIVE: CASE EVENT DATE: 20250101
